FAERS Safety Report 9733635 (Version 3)
Quarter: 2013Q4

REPORT INFORMATION
  Report Type: Spontaneous
  Country: US (occurrence: US)
  Receive Date: 20131205
  Receipt Date: 20131223
  Transmission Date: 20140711
  Serious: Yes (Death, Hospitalization)
  Sender: FDA-Public Use
  Company Number: US-B.I. PHARMACEUTICALS,INC./RIDGEFIELD-2013-BI-40395BP

PATIENT
  Age: 74 Year
  Sex: Female

DRUGS (4)
  1. COMBIVENT [Suspect]
     Indication: CHRONIC OBSTRUCTIVE PULMONARY DISEASE
     Dosage: STRENGTH: 20 MCG / 100 MCG; DAILY DOSE: 80 MCG/400 MCG
     Route: 055
     Dates: start: 20130109, end: 20131117
  2. MEDICATIONS FOR DRY EYES [Concomitant]
  3. HIGH DOSE CORTICOSTEROIDS [Concomitant]
  4. ANTIBIOTICS [Concomitant]

REACTIONS (1)
  - Dyspnoea [Fatal]
